FAERS Safety Report 10271629 (Version 1)
Quarter: 2014Q3

REPORT INFORMATION
  Report Type: Spontaneous
  Country: US (occurrence: US)
  Receive Date: 20140701
  Receipt Date: 20140701
  Transmission Date: 20150326
  Serious: No
  Sender: FDA-Public Use
  Company Number: US-GILEAD-2014-0106666

PATIENT
  Sex: Female

DRUGS (2)
  1. SOVALDI [Suspect]
     Active Substance: SOFOSBUVIR
     Indication: PRODUCT USED FOR UNKNOWN INDICATION
     Route: 065
  2. RIBAVIRIN. [Concomitant]
     Active Substance: RIBAVIRIN

REACTIONS (8)
  - Muscular weakness [Unknown]
  - Irritability [Unknown]
  - Decreased appetite [Unknown]
  - Pruritus [Unknown]
  - Arthralgia [Unknown]
  - Mobility decreased [Unknown]
  - Abdominal distension [Unknown]
  - Nausea [Unknown]
